FAERS Safety Report 20103309 (Version 1)
Quarter: 2021Q4

REPORT INFORMATION
  Report Type: Report from Study
  Country: KR (occurrence: None)
  Receive Date: 20211123
  Receipt Date: 20211123
  Transmission Date: 20220303
  Serious: Yes (Hospitalization)
  Sender: FDA-Public Use
  Company Number: KR-Eisai Medical Research-EC-2021-103675

PATIENT
  Age: 62 Year
  Sex: Male
  Weight: 53.8 kg

DRUGS (8)
  1. LENVIMA [Suspect]
     Active Substance: LENVATINIB
     Indication: Hepatocellular carcinoma
     Route: 048
     Dates: start: 20191111, end: 20200519
  2. MAGNESIUM HYDROXIDE [Concomitant]
     Active Substance: MAGNESIUM HYDROXIDE
     Dosage: 3 TABS
     Route: 048
     Dates: start: 20190918
  3. DUPHALAC-EASY [Concomitant]
     Dates: start: 20190918
  4. VIMOVO [Concomitant]
     Active Substance: ESOMEPRAZOLE MAGNESIUM\NAPROXEN
     Dosage: 2 TAB
     Dates: start: 20190925
  5. LANSOPRAZOLE [Concomitant]
     Active Substance: LANSOPRAZOLE
     Dosage: 1 CAPSULE
     Dates: start: 20200217
  6. STILLEN [Concomitant]
     Dosage: 3 TAB
     Dates: start: 20200217
  7. VIREAD [Concomitant]
     Active Substance: TENOFOVIR DISOPROXIL FUMARATE
     Dosage: 1 TAB
     Dates: start: 20160519
  8. LAMINA-G [Concomitant]
     Dates: start: 20191127

REACTIONS (1)
  - Duodenal perforation [Recovered/Resolved]

NARRATIVE: CASE EVENT DATE: 20200520
